FAERS Safety Report 13966539 (Version 1)
Quarter: 2017Q3

REPORT INFORMATION
  Report Type: Spontaneous
  Country: US (occurrence: US)
  Receive Date: 20170913
  Receipt Date: 20170913
  Transmission Date: 20171128
  Serious: Yes (Hospitalization)
  Sender: FDA-Public Use
  Company Number: US-BEH-2017083438

PATIENT
  Age: 46 Year
  Sex: Female
  Weight: 83.9 kg

DRUGS (11)
  1. PREDNISONE. [Concomitant]
     Active Substance: PREDNISONE
  2. SYNTHROID [Concomitant]
     Active Substance: LEVOTHYROXINE SODIUM
  3. LAMICTAL [Concomitant]
     Active Substance: LAMOTRIGINE
  4. FOLBIC [Concomitant]
     Active Substance: CYANOCOBALAMIN\FOLIC ACID\PYRIDOXINE
  5. PROZAC [Concomitant]
     Active Substance: FLUOXETINE HYDROCHLORIDE
  6. APRISO [Concomitant]
     Active Substance: MESALAMINE
  7. HIZENTRA [Suspect]
     Active Substance: HUMAN IMMUNOGLOBULIN G
     Dosage: UNK
     Route: 058
  8. ASPIRIN. [Concomitant]
     Active Substance: ASPIRIN
  9. PROTONIX [Concomitant]
     Active Substance: PANTOPRAZOLE SODIUM
  10. HYDROXYZINE [Concomitant]
     Active Substance: HYDROXYZINE HYDROCHLORIDE
  11. HIZENTRA [Suspect]
     Active Substance: HUMAN IMMUNOGLOBULIN G
     Indication: IMMUNODEFICIENCY COMMON VARIABLE
     Dosage: 8 G, BIW
     Route: 058
     Dates: start: 20120820

REACTIONS (2)
  - Sinusitis [Unknown]
  - Transient ischaemic attack [Unknown]

NARRATIVE: CASE EVENT DATE: 201708
